FAERS Safety Report 14705691 (Version 1)
Quarter: 2018Q2

REPORT INFORMATION
  Report Type: Other
  Country: DE (occurrence: DE)
  Receive Date: 20180402
  Receipt Date: 20180402
  Transmission Date: 20180711
  Serious: Yes (Hospitalization)
  Sender: FDA-Public Use
  Company Number: DE-CELLTRION INC.-2018DE018810

PATIENT

DRUGS (10)
  1. SIMPONI [Suspect]
     Active Substance: GOLIMUMAB
     Indication: SPONDYLITIS
     Dosage: 50 MG
     Route: 058
     Dates: start: 20160325, end: 20160626
  2. NOVAMINSULFON [Concomitant]
     Active Substance: METAMIZOLE
     Indication: ARTHROSCOPY
     Dosage: 2000 MG
     Route: 065
     Dates: start: 20160808, end: 20160818
  3. INFLIXIMAB (UNKNOWN) [Suspect]
     Active Substance: INFLIXIMAB
     Indication: SPONDYLITIS
     Dosage: 500 MG (LYOPHILIZED POWDER )
     Route: 042
     Dates: start: 20160701, end: 20160701
  4. PANTOZOL [Concomitant]
     Active Substance: PANTOPRAZOLE SODIUM
     Indication: GASTROINTESTINAL DISORDER THERAPY
     Dosage: 20 MG
     Route: 065
  5. NEBIVOLOL. [Concomitant]
     Active Substance: NEBIVOLOL
     Indication: HYPERTENSION
     Dosage: 5 MG
     Route: 065
  6. DICLOFENAC [Concomitant]
     Active Substance: DICLOFENAC
     Dosage: 75 MG
     Route: 065
     Dates: start: 20160804
  7. AMINEURIN [Concomitant]
     Active Substance: AMITRIPTYLINE HYDROCHLORIDE
     Indication: SPONDYLITIS
     Dosage: 25 MG
     Route: 065
     Dates: start: 20160818
  8. IBUPROFEN. [Concomitant]
     Active Substance: IBUPROFEN
     Indication: ARTHROSCOPY
     Dosage: 3000 MG
     Route: 065
     Dates: start: 20160806, end: 20160818
  9. TILIDINE [Concomitant]
     Active Substance: TILIDINE
     Indication: SPONDYLITIS
     Dosage: 100 MG
     Route: 065
     Dates: start: 20160607, end: 20160804
  10. TRAMAL [Concomitant]
     Active Substance: TRAMADOL
     Indication: ARTHROSCOPY
     Dosage: 50 MG
     Route: 065
     Dates: start: 20160808, end: 20160815

REACTIONS (5)
  - Drug ineffective [Unknown]
  - Chondrocalcinosis [Recovered/Resolved]
  - Bursitis [Recovered/Resolved]
  - Influenza like illness [Recovered/Resolved]
  - Arthroscopy [Recovered/Resolved]

NARRATIVE: CASE EVENT DATE: 20160315
